FAERS Safety Report 6753063-2 (Version None)
Quarter: 2010Q2

REPORT INFORMATION
  Report Type: 
  Country: None (occurrence: None)
  Receive Date: 20100602
  Receipt Date: 20100602
  Transmission Date: 20101027
  Serious: Yes (Other)
  Sender: FDA-Public Use
  Company Number: None

PATIENT
  Age: 63 Year
  Sex: Female
  Weight: 75.7507 kg

DRUGS (1)
  1. COMBIGAN [Suspect]
     Indication: INTRAOCULAR PRESSURE TEST ABNORMAL
     Dosage: 1 DROP EA. EYE 2 X DAY
     Dates: start: 20091029, end: 20100408

REACTIONS (3)
  - OCULAR HYPERAEMIA [None]
  - SCAB [None]
  - SKIN IRRITATION [None]
